FAERS Safety Report 9298279 (Version 1)
Quarter: 2013Q2

REPORT INFORMATION
  Report Type: Spontaneous
  Country: US (occurrence: US)
  Receive Date: 20130520
  Receipt Date: 20130520
  Transmission Date: 20140414
  Serious: Yes (Other)
  Sender: FDA-Public Use
  Company Number: US-SANOFI-AVENTIS-2013SA049572

PATIENT
  Age: 60 Year
  Sex: Male

DRUGS (3)
  1. LANTUS [Suspect]
     Indication: TYPE 2 DIABETES MELLITUS
     Dosage: DOSE: 15-20 UNITS?PRODUCT START DATE: 7 YEARS
     Dates: start: 2005
  2. NOVOLOG [Concomitant]
     Indication: DIABETES MELLITUS
     Dates: start: 2005
  3. LEVOTHYROXINE [Concomitant]
     Indication: THYROID DISORDER
     Dates: start: 2005

REACTIONS (1)
  - Coronary artery bypass [Unknown]
